FAERS Safety Report 25552588 (Version 1)
Quarter: 2025Q3

REPORT INFORMATION
  Report Type: Spontaneous
  Country: CN (occurrence: CN)
  Receive Date: 20250715
  Receipt Date: 20250715
  Transmission Date: 20251021
  Serious: Yes (Hospitalization, Other)
  Sender: BAXTER
  Company Number: None

PATIENT
  Age: 71 Year
  Sex: Female
  Weight: 70 kg

DRUGS (1)
  1. CYCLOPHOSPHAMIDE [Suspect]
     Active Substance: CYCLOPHOSPHAMIDE
     Indication: Breast cancer female
     Dosage: 0.8 G, EVERY 3 WK
     Route: 041
     Dates: start: 20250519, end: 20250519

REACTIONS (11)
  - Hyperpyrexia [Recovered/Resolved]
  - Myelosuppression [Recovered/Resolved]
  - White blood cell count decreased [Recovered/Resolved]
  - Gastrointestinal disorder [Recovered/Resolved]
  - Feeding disorder [Recovered/Resolved]
  - Productive cough [Recovered/Resolved]
  - Depressed mood [Recovered/Resolved]
  - Poor quality sleep [Recovered/Resolved]
  - Abnormal faeces [Recovered/Resolved]
  - Weight decreased [Recovered/Resolved]
  - Decreased appetite [Recovered/Resolved]

NARRATIVE: CASE EVENT DATE: 20250523
